FAERS Safety Report 6265773-4 (Version None)
Quarter: 2009Q3

REPORT INFORMATION
  Report Type: 
  Country: None (occurrence: None)
  Receive Date: 20090709
  Receipt Date: 20090709
  Transmission Date: 20100115
  Serious: Yes (Other)
  Sender: FDA-Public Use
  Company Number: None

PATIENT
  Age: 62 Year
  Sex: Male
  Weight: 83.9154 kg

DRUGS (1)
  1. CYMBALTA [Suspect]
     Indication: DEPRESSION
     Dosage: DAILY PO
     Route: 048
     Dates: start: 20060101, end: 20090708

REACTIONS (5)
  - APATHY [None]
  - DYSURIA [None]
  - LOSS OF LIBIDO [None]
  - PARTNER STRESS [None]
  - PERSONALITY CHANGE [None]
